FAERS Safety Report 19195314 (Version 1)
Quarter: 2021Q2

REPORT INFORMATION
  Report Type: Spontaneous
  Country: US (occurrence: US)
  Receive Date: 20210429
  Receipt Date: 20210429
  Transmission Date: 20210717
  Serious: No
  Sender: FDA-Public Use
  Company Number: None

PATIENT
  Age: 33 Year
  Sex: Female
  Weight: 101.6 kg

DRUGS (5)
  1. TYLENOL EXTRA STRENGTH [Concomitant]
     Active Substance: ACETAMINOPHEN
  2. MESNEX [Suspect]
     Active Substance: MESNA
     Indication: RENAL CANCER
     Route: 048
     Dates: start: 20201112
  3. MULTIVITAMIN ADULTS [Concomitant]
  4. PROCHLORPERAZINE MALEATE. [Concomitant]
     Active Substance: PROCHLORPERAZINE MALEATE
  5. OLANZAPINE. [Concomitant]
     Active Substance: OLANZAPINE

REACTIONS (2)
  - Neutropenia [None]
  - Therapy interrupted [None]

NARRATIVE: CASE EVENT DATE: 20210429
